FAERS Safety Report 7546818-8 (Version None)
Quarter: 2011Q2

REPORT INFORMATION
  Report Type: 
  Country: None (occurrence: None)
  Receive Date: 20110614
  Receipt Date: 20110610
  Transmission Date: 20111010
  Serious: Yes (Hospitalization)
  Sender: FDA-Public Use
  Company Number: JP-SANOFI-AVENTIS-2011SA025925

PATIENT
  Age: 74 Year
  Sex: Female

DRUGS (6)
  1. LEUCOVORIN CALCIUM [Suspect]
     Route: 065
  2. BEVACIZUMAB [Suspect]
     Route: 065
  3. OXALIPLATIN [Suspect]
     Route: 065
  4. OXALIPLATIN [Suspect]
     Route: 065
  5. FLUOROURACIL [Suspect]
     Route: 065
  6. DEXAMETHASONE [Concomitant]
     Route: 065

REACTIONS (5)
  - NAUSEA [None]
  - DUODENAL ULCER [None]
  - VOMITING [None]
  - HAEMORRHAGE [None]
  - GASTRIC ULCER [None]
